FAERS Safety Report 25674050 (Version 2)
Quarter: 2025Q3

REPORT INFORMATION
  Report Type: Spontaneous
  Country: RU (occurrence: RU)
  Receive Date: 20250813
  Receipt Date: 20250902
  Transmission Date: 20251021
  Serious: Yes (Hospitalization, Disabling, Other)
  Sender: ALKEM
  Company Number: None

PATIENT
  Age: 13 Year
  Sex: Female
  Weight: 40.15 kg

DRUGS (18)
  1. ARIPIPRAZOLE [Suspect]
     Active Substance: ARIPIPRAZOLE
     Indication: Mixed anxiety and depressive disorder
     Dosage: 5 MILLIGRAM, QD
     Route: 065
  2. ARIPIPRAZOLE [Suspect]
     Active Substance: ARIPIPRAZOLE
     Indication: Dissociative disorder
  3. OLANZAPINE [Suspect]
     Active Substance: OLANZAPINE
     Indication: Catatonia
     Dosage: 5 MILLIGRAM, QD
     Route: 065
  4. OLANZAPINE [Suspect]
     Active Substance: OLANZAPINE
     Dosage: 15 MILLIGRAM, QD
     Route: 065
  5. QUETIAPINE FUMARATE [Suspect]
     Active Substance: QUETIAPINE FUMARATE
     Indication: Conversion disorder
     Dosage: 50 MILLIGRAM, QD
     Route: 065
  6. QUETIAPINE FUMARATE [Suspect]
     Active Substance: QUETIAPINE FUMARATE
     Indication: Mixed anxiety and depressive disorder
     Dosage: 100 MILLIGRAM, QD (RECHALLENGE DOSE)
     Route: 065
  7. HALOPERIDOL [Suspect]
     Active Substance: HALOPERIDOL
     Indication: Catatonia
     Dosage: 9 MILLIGRAM, QD
     Route: 065
  8. PERICIAZINE [Suspect]
     Active Substance: PERICIAZINE
     Indication: Catatonia
     Dosage: 15 MILLIGRAM, QD
     Route: 065
  9. PERICIAZINE [Suspect]
     Active Substance: PERICIAZINE
     Dosage: 10 MILLIGRAM, QD (RECHALLENGE DOSE)
     Route: 065
  10. SERTRALINE [Suspect]
     Active Substance: SERTRALINE HYDROCHLORIDE
     Indication: Conversion disorder
     Dosage: 100 MILLIGRAM, QD
     Route: 065
  11. SERTRALINE [Suspect]
     Active Substance: SERTRALINE HYDROCHLORIDE
     Indication: Mixed anxiety and depressive disorder
     Dosage: 50 MILLIGRAM, QD (RECHALLENGE DOSE) (IN MORNING)
     Route: 065
  12. BIPERIDEN [Concomitant]
     Active Substance: BIPERIDEN
     Indication: Catatonia
     Dosage: 1 MILLIGRAM, TID
     Route: 048
  13. BIPERIDEN [Concomitant]
     Active Substance: BIPERIDEN
     Route: 065
  14. BIPERIDEN [Concomitant]
     Active Substance: BIPERIDEN
     Route: 065
  15. BIPERIDEN [Concomitant]
     Active Substance: BIPERIDEN
     Route: 065
  16. BIPERIDEN [Concomitant]
     Active Substance: BIPERIDEN
     Dosage: 4 MILLIGRAM, QD
     Route: 065
  17. HOPANTENIC ACID [Concomitant]
     Active Substance: HOPANTENIC ACID
     Indication: Catatonia
     Dosage: 500 MILLIGRAM, TID
     Route: 065
  18. HOPANTENIC ACID [Concomitant]
     Active Substance: HOPANTENIC ACID
     Dosage: 1500 MILLIGRAM, QD
     Route: 065

REACTIONS (4)
  - Hypertonia [Recovered/Resolved]
  - Dystonia [Recovered/Resolved]
  - Extrapyramidal disorder [Recovered/Resolved]
  - Tremor [Recovered/Resolved]
